FAERS Safety Report 25148337 (Version 1)
Quarter: 2025Q2

REPORT INFORMATION
  Report Type: Report from Study
  Country: CA (occurrence: CA)
  Receive Date: 20250402
  Receipt Date: 20250402
  Transmission Date: 20250716
  Serious: Yes (Other)
  Sender: ABBVIE
  Company Number: CA-ABBVIE-6200231

PATIENT
  Age: 33 Year
  Sex: Male

DRUGS (1)
  1. SKYRIZI [Suspect]
     Active Substance: RISANKIZUMAB-RZAA
     Indication: Crohn^s disease
     Route: 058

REACTIONS (4)
  - Terminal ileitis [Unknown]
  - Ileal stenosis [Unknown]
  - Faecal calprotectin abnormal [Unknown]
  - C-reactive protein abnormal [Unknown]

NARRATIVE: CASE EVENT DATE: 20250219
